FAERS Safety Report 9223506 (Version 1)
Quarter: 2013Q2

REPORT INFORMATION
  Report Type: Spontaneous
  Country: US (occurrence: US)
  Receive Date: 20130410
  Receipt Date: 20130410
  Transmission Date: 20140414
  Serious: No
  Sender: FDA-Public Use
  Company Number: US-ASTRAZENECA-2013SE20345

PATIENT
  Sex: Male

DRUGS (3)
  1. LISINOPRIL [Suspect]
     Route: 048
  2. PLAVIX [Suspect]
     Route: 048
  3. BRILINTA [Suspect]
     Route: 048

REACTIONS (1)
  - Rash [Unknown]
